FAERS Safety Report 22850399 (Version 4)
Quarter: 2023Q4

REPORT INFORMATION
  Report Type: Report from Study
  Country: US (occurrence: US)
  Receive Date: 20230822
  Receipt Date: 20231123
  Transmission Date: 20240110
  Serious: Yes (Hospitalization, Other)
  Sender: FDA-Public Use
  Company Number: US-002147023-NVSC2023US179250

PATIENT
  Sex: Male
  Weight: 146 kg

DRUGS (14)
  1. ENTRESTO [Suspect]
     Active Substance: SACUBITRIL\VALSARTAN
     Indication: Cardiac failure
     Dosage: 1 DOSAGE FORM, BID
     Route: 065
     Dates: start: 20230110, end: 20230822
  2. ENTRESTO [Suspect]
     Active Substance: SACUBITRIL\VALSARTAN
     Dosage: 1 DOSAGE FORM, BID
     Route: 048
     Dates: start: 202303
  3. ALBUTEROL [Concomitant]
     Active Substance: ALBUTEROL
     Indication: Product used for unknown indication
     Dosage: INHALE 2 PUFFS IN THE MORNING, 2 PUFFS AT NOON, 2 PUFFS IN THE EVENING AND 2 PUFFS BEFORE BEDTIME. D
     Dates: start: 20230316
  4. COREG [Concomitant]
     Active Substance: CARVEDILOL
     Indication: Product used for unknown indication
     Dosage: 1 DOSAGE FORM, BID (DISP: 60 TABLET, RFL: 6)
     Route: 065
     Dates: start: 20230101
  5. FARXIGA [Concomitant]
     Active Substance: DAPAGLIFLOZIN PROPANEDIOL
     Indication: Product used for unknown indication
     Dosage: 1 DOSAGE FORM, QD (DISP: 30 TABLET, RFL: 5)
     Route: 048
     Dates: start: 20221212
  6. LASIX [Concomitant]
     Active Substance: FUROSEMIDE
     Indication: Product used for unknown indication
     Dosage: 1 DOSAGE FORM, QD (DISP: 30 TABLET, RFL: 5)
     Route: 048
     Dates: start: 20221212
  7. PRILOSEC [Concomitant]
     Active Substance: OMEPRAZOLE MAGNESIUM
     Indication: Gastrooesophageal reflux disease
     Dosage: TAKE 20 MG BY MOUTH IF NEEDED
     Route: 048
  8. PANTOPRAZOLE [Concomitant]
     Active Substance: PANTOPRAZOLE
     Indication: Product used for unknown indication
     Dosage: 1 DOSAGE FORM, QD, DO NOT CRUSH, CHEW, OR SPLIT (DISP: 30 TABLET, RFL: 11), DO NOT START BEFORE 05 M
     Route: 048
     Dates: start: 20230505
  9. DELTASONE [Concomitant]
     Active Substance: PREDNISONE
     Indication: Product used for unknown indication
     Dosage: 3 DOSAGE FORM, QD ((30 MG) DAILY FOR 45 DAYS,)
     Route: 065
     Dates: start: 20230511
  10. DELTASONE [Concomitant]
     Active Substance: PREDNISONE
     Dosage: 2 DOSAGE FORM, QD (20 MG) (DISP: 225 TABLET, RFL: 0)
     Route: 065
  11. CRESTOR [Concomitant]
     Active Substance: ROSUVASTATIN CALCIUM
     Indication: Product used for unknown indication
     Dosage: 1 DOSAGE FORM, QD (DISP: 30 TAB ET, RFL:)
     Route: 065
     Dates: start: 20230104
  12. ALDACTONE [Concomitant]
     Active Substance: SPIRONOLACTONE
     Indication: Product used for unknown indication
     Dosage: 1 DOSAGE FORM, QD (DISP: 30 TABLET, RFL: 6)
     Route: 048
     Dates: start: 20230104
  13. FLOMAX [Concomitant]
     Active Substance: TAMSULOSIN HYDROCHLORIDE
     Indication: Product used for unknown indication
     Dosage: 1 DOSAGE FORM, QD (DISP: 30 CAPSULE, RF1: 4)
     Route: 048
     Dates: start: 20230425
  14. BACTRIM DS [Concomitant]
     Active Substance: SULFAMETHOXAZOLE\TRIMETHOPRIM
     Indication: Product used for unknown indication
     Dosage: 1 DOSAGE FORM, QD (ON MON WED FRI)
     Route: 048
     Dates: start: 20230511

REACTIONS (24)
  - Dyspnoea exertional [Recovered/Resolved]
  - Rhinorrhoea [Unknown]
  - Neck pain [Unknown]
  - Peripheral swelling [Not Recovered/Not Resolved]
  - Wheezing [Unknown]
  - Pulmonary embolism [Unknown]
  - Deep vein thrombosis [Unknown]
  - Interstitial lung disease [Not Recovered/Not Resolved]
  - Pulmonary sarcoidosis [Not Recovered/Not Resolved]
  - Cardiac sarcoidosis [Recovered/Resolved]
  - Thrombosis [Unknown]
  - Coronary artery stenosis [Unknown]
  - Pulmonary fibrosis [Unknown]
  - Back pain [Unknown]
  - Gait disturbance [Not Recovered/Not Resolved]
  - Dry skin [Unknown]
  - Sinus tachycardia [Unknown]
  - Dyslipidaemia [Unknown]
  - Fluid retention [Not Recovered/Not Resolved]
  - Oedema peripheral [Not Recovered/Not Resolved]
  - Hunger [Recovering/Resolving]
  - Thirst [Recovering/Resolving]
  - Weight increased [Recovering/Resolving]
  - Dyspnoea [Not Recovered/Not Resolved]

NARRATIVE: CASE EVENT DATE: 20230101
